FAERS Safety Report 5943865-4 (Version None)
Quarter: 2008Q4

REPORT INFORMATION
  Report Type: 
  Country: None (occurrence: None)
  Receive Date: 20081106
  Receipt Date: 20081030
  Transmission Date: 20090506
  Serious: Yes (Other)
  Sender: FDA-Public Use
  Company Number: JP-AVENTIS-200812957JP

PATIENT
  Age: 54 Year
  Sex: Male
  Weight: 73.4 kg

DRUGS (6)
  1. LANTUS [Suspect]
     Indication: DIABETES MELLITUS
     Dosage: DOSE: 8 UNITS
     Route: 058
     Dates: start: 20080811, end: 20080916
  2. HUMALOG [Suspect]
     Indication: DIABETES MELLITUS
     Dosage: DOSE: 6 UNITS/DAY
     Route: 058
     Dates: start: 20080811, end: 20080916
  3. NOVORAPID [Concomitant]
     Indication: DIABETES MELLITUS
     Dates: end: 20080810
  4. BLOPRESS [Concomitant]
     Indication: HYPERTENSION
     Route: 048
     Dates: start: 20080208
  5. CRESTOR [Concomitant]
     Route: 048
     Dates: start: 20071116, end: 20080918
  6. LEVEMIR [Concomitant]
     Indication: DIABETES MELLITUS
     Dates: end: 20080810

REACTIONS (1)
  - LIVER DISORDER [None]
